FAERS Safety Report 5048193-X (Version None)
Quarter: 2006Q3

REPORT INFORMATION
  Report Type: 
  Country: None (occurrence: None)
  Receive Date: 20060711
  Receipt Date: 20060619
  Transmission Date: 20061208
  Serious: Yes (Other)
  Sender: FDA-Public Use
  Company Number: DE-ROCHE-454117

PATIENT
  Age: 69 Year
  Sex: Female
  Weight: 56.4 kg

DRUGS (2)
  1. BONIVA [Suspect]
     Indication: MULTIPLE MYELOMA
     Route: 042
     Dates: start: 20060327, end: 20060606
  2. THALIDOMIDE [Suspect]
     Indication: DRUG USE FOR UNKNOWN INDICATION
     Route: 065
     Dates: start: 20060327

REACTIONS (1)
  - CREATININE RENAL CLEARANCE DECREASED [None]
